FAERS Safety Report 6516163-8 (Version None)
Quarter: 2009Q4

REPORT INFORMATION
  Report Type: 
  Country: None (occurrence: None)
  Receive Date: 20091223
  Receipt Date: 20091214
  Transmission Date: 20100525
  Serious: Yes (Other)
  Sender: FDA-Public Use
  Company Number: US-BAYER-200917559BCC

PATIENT
  Age: 80 Year
  Sex: Male
  Weight: 89 kg

DRUGS (14)
  1. ALKA SELTZER PLUS EFFERVESCENT MUCUS + CONGESTION [Suspect]
     Indication: NASOPHARYNGITIS
     Dosage: TOTAL DAILY DOSE: 8 DF
     Route: 048
     Dates: start: 20091204
  2. HUMALOG [Concomitant]
     Route: 065
  3. LANTUS [Concomitant]
     Route: 065
  4. ADVAIR DISKUS 100/50 [Concomitant]
     Route: 065
  5. SIMVASTATIN [Concomitant]
     Route: 065
  6. AMLODIPINE [Concomitant]
     Route: 065
  7. ATENOLOL [Concomitant]
     Route: 065
  8. FUROSEMIDE [Concomitant]
     Route: 065
  9. ASPIRIN [Concomitant]
     Route: 065
  10. FENTANYL-100 [Concomitant]
     Route: 065
  11. TYLENOL (CAPLET) [Concomitant]
     Route: 065
  12. VITEYES [Concomitant]
     Route: 065
  13. NEBULIZER [Concomitant]
     Route: 065
  14. BENICAR [Concomitant]
     Route: 065

REACTIONS (1)
  - HAEMOPTYSIS [None]
